FAERS Safety Report 14025641 (Version 1)
Quarter: 2017Q3

REPORT INFORMATION
  Report Type: Spontaneous
  Country: US (occurrence: US)
  Receive Date: 20170929
  Receipt Date: 20170929
  Transmission Date: 20171128
  Serious: No
  Sender: FDA-Public Use
  Company Number: US-GLAXOSMITHKLINE-US2017GSK150880

PATIENT
  Sex: Male

DRUGS (1)
  1. ADVAIR DISKUS [Suspect]
     Active Substance: FLUTICASONE PROPIONATE\SALMETEROL XINAFOATE
     Indication: ASTHMA
     Dosage: 1 PUFF(S), UNK
     Route: 055
     Dates: start: 2005

REACTIONS (6)
  - Hyperhidrosis [Recovering/Resolving]
  - Chest discomfort [Recovered/Resolved]
  - Cough [Unknown]
  - Dry mouth [Not Recovered/Not Resolved]
  - Palpitations [Recovered/Resolved]
  - Dysphonia [Unknown]
